FAERS Safety Report 22384357 (Version 1)
Quarter: 2023Q2

REPORT INFORMATION
  Report Type: Spontaneous
  Country: US (occurrence: None)
  Receive Date: 20230527
  Receipt Date: 20230527
  Transmission Date: 20230722
  Serious: Yes (Other)
  Sender: FDA-Public Use
  Company Number: None

PATIENT
  Age: 52 Year
  Sex: Female
  Weight: 95.4 kg

DRUGS (4)
  1. ZYRTEC [Suspect]
     Active Substance: CETIRIZINE HYDROCHLORIDE
     Indication: Seasonal allergy
     Dosage: FREQUENCY : DAILY;?
     Route: 048
     Dates: start: 20230418, end: 20230418
  2. IBUPROFEN [Concomitant]
     Active Substance: IBUPROFEN
  3. SUDAFED [Concomitant]
     Active Substance: PSEUDOEPHEDRINE HYDROCHLORIDE
  4. BENADRYL [Concomitant]
     Active Substance: DIPHENHYDRAMINE HYDROCHLORIDE

REACTIONS (10)
  - Mental impairment [None]
  - Somnolence [None]
  - Abnormal behaviour [None]
  - Toxicity to various agents [None]
  - Aphasia [None]
  - Dysstasia [None]
  - Gait disturbance [None]
  - Headache [None]
  - Hangover [None]
  - Feeling drunk [None]

NARRATIVE: CASE EVENT DATE: 20230418
